FAERS Safety Report 17006280 (Version 3)
Quarter: 2019Q4

REPORT INFORMATION
  Report Type: Other
  Country: US (occurrence: US)
  Receive Date: 20191107
  Receipt Date: 20191227
  Transmission Date: 20200122
  Serious: No
  Sender: FDA-Public Use
  Company Number: US-AMAG PHARMACEUTICALS, INC.-AMAG201905660

PATIENT
  Age: 31 Year
  Sex: Female
  Weight: 88.98 kg

DRUGS (3)
  1. LABETALOL [Concomitant]
     Active Substance: LABETALOL\LABETALOL HYDROCHLORIDE
     Indication: HYPERTENSION
     Dates: start: 20190725
  2. VITAFOL ULTRA [Concomitant]
     Active Substance: .ALPHA.-TOCOPHEROL ACETATE, DL-\.BETA.-CAROTENE\ASCORBIC ACID\CHOLECALCIFEROL\CUPRIC OXIDE\CYANOCOBALAMIN\DOCONEXENT\FOLIC ACID\IRON\LEVOMEFOLATE CALCIUM\MAGNESIUM OXIDE\NIACINAMIDE\POTASSIUM IODIDE\PYRIDOXINE HYDROCHLORIDE\RIBOFLAVIN\THIAMINE MONONITRATE\ZINC OXIDE
     Indication: PREGNANCY
     Dosage: 1 TAB DAILY
     Dates: start: 20190723
  3. MAKENA [Suspect]
     Active Substance: HYDROXYPROGESTERONE CAPROATE
     Indication: PREMATURE DELIVERY
     Dosage: 275 MG/1.1 ML
     Route: 058
     Dates: start: 20190926

REACTIONS (4)
  - Epistaxis [Not Recovered/Not Resolved]
  - Injection site swelling [Recovered/Resolved]
  - Product administration error [Unknown]
  - Peripheral swelling [Recovered/Resolved]

NARRATIVE: CASE EVENT DATE: 20191019
